FAERS Safety Report 5713695-7 (Version None)
Quarter: 2008Q2

REPORT INFORMATION
  Report Type: 
  Country: None (occurrence: None)
  Receive Date: 20080418
  Receipt Date: 20080402
  Transmission Date: 20081010
  Serious: No
  Sender: FDA-Public Use
  Company Number: 2005JP001089

PATIENT
  Age: 7 Year
  Sex: Male

DRUGS (1)
  1. PROTOPIC [Suspect]
     Indication: DERMATITIS ATOPIC
     Dosage: 0.053%, TOPICAL
     Route: 061

REACTIONS (6)
  - BACTERIAL INFECTION [None]
  - ECZEMA IMPETIGINOUS [None]
  - FOLLICULITIS [None]
  - GRANULOMA [None]
  - IMPETIGO [None]
  - SKIN PAPILLOMA [None]
